FAERS Safety Report 8180004-6 (Version None)
Quarter: 2012Q1

REPORT INFORMATION
  Report Type: 
  Country: None (occurrence: None)
  Receive Date: 20120302
  Receipt Date: 20120228
  Transmission Date: 20120608
  Serious: Yes (Death, Life-Threatening)
  Sender: FDA-Public Use
  Company Number: DE-BAYER-2012-019633

PATIENT
  Age: 94 Year
  Sex: Female

DRUGS (2)
  1. CORTISONE ACETATE [Suspect]
     Indication: BRONCHITIS
  2. AVELOX [Suspect]
     Indication: BRONCHITIS
     Dosage: 400 MG, UNK
     Route: 048

REACTIONS (4)
  - BLOOD POTASSIUM INCREASED [None]
  - DIZZINESS [None]
  - FATIGUE [None]
  - CARDIAC FAILURE [None]
